FAERS Safety Report 4838232-0 (Version None)
Quarter: 2005Q4

REPORT INFORMATION
  Report Type: 
  Country: None (occurrence: None)
  Receive Date: 20051128
  Receipt Date: 20051118
  Transmission Date: 20060501
  Serious: Yes (Hospitalization)
  Sender: FDA-Public Use
  Company Number: US-MERCK-0511USA03490

PATIENT
  Sex: Male
  Weight: 84 kg

DRUGS (5)
  1. VIOXX [Suspect]
     Route: 048
  2. COUMADIN [Concomitant]
     Route: 065
  3. ZANTAC [Concomitant]
     Route: 065
  4. NORVASC [Concomitant]
     Route: 065
  5. LASIX [Concomitant]
     Route: 065

REACTIONS (6)
  - CEREBROVASCULAR ACCIDENT [None]
  - EAR DISORDER [None]
  - FALL [None]
  - HIP FRACTURE [None]
  - MYOCARDIAL INFARCTION [None]
  - UPPER LIMB FRACTURE [None]
